FAERS Safety Report 17264076 (Version 1)
Quarter: 2019Q4

REPORT INFORMATION
  Report Type: Spontaneous
  Country: US (occurrence: US)
  Receive Date: 20191219
  Receipt Date: 20191219
  Transmission Date: 20200122
  Serious: Yes (Hospitalization)
  Sender: FDA-Public Use
  Company Number: None

PATIENT
  Age: 70 Year
  Sex: Female

DRUGS (4)
  1. HYDROCO/APAP [Concomitant]
     Active Substance: ACETAMINOPHEN\HYDROCODONE
  2. DULOXETINE. [Concomitant]
     Active Substance: DULOXETINE
  3. NITROFURANTN [Concomitant]
     Active Substance: NITROFURANTOIN
  4. GLATIRAMER  40MG/ML [Suspect]
     Active Substance: GLATIRAMER
     Indication: MULTIPLE SCLEROSIS
     Route: 058
     Dates: start: 20181016

REACTIONS (1)
  - Fall [None]

NARRATIVE: CASE EVENT DATE: 20191205
